FAERS Safety Report 4772461-X (Version None)
Quarter: 2005Q3

REPORT INFORMATION
  Report Type: 
  Country: None (occurrence: None)
  Receive Date: 20050915
  Receipt Date: 20050915
  Transmission Date: 20060218
  Serious: Yes (Other)
  Sender: FDA-Public Use
  Company Number: None

PATIENT
  Age: 45 Year
  Sex: Male
  Weight: 98.8842 kg

DRUGS (4)
  1. BUPROPION HCL [Suspect]
     Dosage: 200 MG PO BID [TAPER UP]
     Route: 048
     Dates: start: 20050907
  2. AMITRIPTYLINE HCL [Concomitant]
  3. QUETIAPIN [Concomitant]
  4. HIV DRUGS [Concomitant]

REACTIONS (1)
  - CONVULSION [None]
